FAERS Safety Report 6242582-3 (Version None)
Quarter: 2009Q2

REPORT INFORMATION
  Report Type: 
  Country: None (occurrence: None)
  Receive Date: 20090622
  Receipt Date: 20090622
  Transmission Date: 20091009
  Serious: Yes (Other)
  Sender: FDA-Public Use
  Company Number: None

PATIENT
  Age: 24 Year
  Sex: Male
  Weight: 83.9154 kg

DRUGS (1)
  1. ACETAMINOPHN-ISOMETH-DICHLORAL 100 MG HEB PHARMACY [Suspect]
     Indication: MIGRAINE
     Dosage: 2 CAPSULES 2 A DAY PO
     Route: 048
     Dates: start: 20090617, end: 20090621

REACTIONS (1)
  - RASH [None]
